FAERS Safety Report 15830478 (Version 1)
Quarter: 2019Q1

REPORT INFORMATION
  Report Type: Spontaneous
  Country: US (occurrence: US)
  Receive Date: 20190115
  Receipt Date: 20190115
  Transmission Date: 20190417
  Serious: No
  Sender: FDA-Public Use
  Company Number: US-SA-2019SA011546

PATIENT
  Sex: Female

DRUGS (1)
  1. ZANTAC 75 [Suspect]
     Active Substance: RANITIDINE HYDROCHLORIDE
     Dosage: TAKES 2 TABLETS OF ZANTAC IN THE MORNING AND 2 TUMS

REACTIONS (5)
  - Nausea [Unknown]
  - Night sweats [Unknown]
  - Musculoskeletal pain [Unknown]
  - Chest pain [Unknown]
  - Renal disorder [Unknown]
